FAERS Safety Report 4496550-2 (Version None)
Quarter: 2004Q4

REPORT INFORMATION
  Report Type: 
  Country: None (occurrence: None)
  Receive Date: 20041109
  Receipt Date: 20041005
  Transmission Date: 20050328
  Serious: Yes (Death, Hospitalization)
  Sender: FDA-Public Use
  Company Number: BE-BRISTOL-MYERS SQUIBB COMPANY-12721593

PATIENT
  Age: 50 Year
  Sex: Male
  Weight: 56 kg

DRUGS (7)
  1. ATAZANAVIR [Suspect]
     Indication: HIV INFECTION
     Route: 048
     Dates: start: 20040910, end: 20040920
  2. BACTRIM [Concomitant]
     Dosage: 20-SEP TO 23-SEP
     Route: 042
  3. HYDROCORTISONE [Concomitant]
     Dosage: 19-SEP TO 23-SEP
     Route: 042
  4. NEXIUM [Concomitant]
     Dosage: 17-SEP TO 23-SEP
     Route: 042
  5. FLUCONAZOLE [Concomitant]
     Dosage: 17-SEP TO 23-SEP
     Route: 042
  6. FUROSEMIDE [Concomitant]
     Dosage: 19-SEP TO 23-SEP
     Route: 042
  7. RITONAVIR [Concomitant]
     Dates: start: 20040910, end: 20040920

REACTIONS (3)
  - CYTOMEGALOVIRUS CHORIORETINITIS [None]
  - HIV WASTING SYNDROME [None]
  - INFECTION [None]
